FAERS Safety Report 10459955 (Version 1)
Quarter: 2014Q3

REPORT INFORMATION
  Report Type: Spontaneous
  Country: US (occurrence: US)
  Receive Date: 20140917
  Receipt Date: 20140917
  Transmission Date: 20150326
  Serious: Yes (Death)
  Sender: FDA-Public Use
  Company Number: US-BAXTER-2014BAX055304

PATIENT
  Age: 2 Year

DRUGS (1)
  1. 5% DEXTROSE INJECTION USP [Suspect]
     Active Substance: DEXTROSE
     Indication: PRODUCT USED FOR UNKNOWN INDICATION
     Route: 065

REACTIONS (3)
  - Product compounding quality issue [Unknown]
  - Death [Fatal]
  - Overdose [Unknown]
